FAERS Safety Report 6184118-1 (Version None)
Quarter: 2009Q2

REPORT INFORMATION
  Report Type: 
  Country: None (occurrence: None)
  Receive Date: 20090508
  Receipt Date: 20090428
  Transmission Date: 20091009
  Serious: Yes (Other)
  Sender: FDA-Public Use
  Company Number: PHHY2008BR25646

PATIENT
  Age: 62 Year
  Sex: Female
  Weight: 57 kg

DRUGS (2)
  1. ESTRADERM [Suspect]
     Indication: HORMONE REPLACEMENT THERAPY
     Dosage: 25 MCG
     Route: 062
     Dates: start: 19980101
  2. ESTRADERM [Suspect]
     Dosage: 50 MCG
     Route: 062

REACTIONS (18)
  - ARTHRALGIA [None]
  - ASPIRATION BREAST [None]
  - BLOOD PRESSURE DECREASED [None]
  - CUTIS LAXA [None]
  - DEPRESSION [None]
  - DERMATITIS BULLOUS [None]
  - DRUG DOSE OMISSION [None]
  - EYELID DISORDER [None]
  - FLUID RETENTION [None]
  - GAIT DISTURBANCE [None]
  - HAIR TEXTURE ABNORMAL [None]
  - LIPOATROPHY [None]
  - MALAISE [None]
  - MENOPAUSE [None]
  - PRODUCT QUALITY ISSUE [None]
  - SKIN COSMETIC PROCEDURE [None]
  - SKIN DISORDER [None]
  - VULVOVAGINAL DRYNESS [None]
